FAERS Safety Report 5788838-X (Version None)
Quarter: 2008Q2

REPORT INFORMATION
  Report Type: 
  Country: None (occurrence: None)
  Receive Date: 20080626
  Receipt Date: 20080624
  Transmission Date: 20081010
  Serious: Yes (Other)
  Sender: FDA-Public Use
  Company Number: US-RB-001739-08

PATIENT
  Age: 20 Year
  Sex: Female

DRUGS (1)
  1. SUBOXONE [Suspect]
     Route: 060

REACTIONS (4)
  - DRUG EXPOSURE DURING PREGNANCY [None]
  - NAUSEA [None]
  - SELECTIVE ABORTION [None]
  - VOMITING [None]
